FAERS Safety Report 8414063-X (Version None)
Quarter: 2012Q2

REPORT INFORMATION
  Report Type: 
  Country: None (occurrence: None)
  Receive Date: 20120605
  Receipt Date: 20120531
  Transmission Date: 20120825
  Serious: Yes (Other)
  Sender: FDA-Public Use
  Company Number: US-ELI_LILLY_AND_COMPANY-US201206000651

PATIENT
  Sex: Male

DRUGS (1)
  1. HUMATROPE [Suspect]
     Indication: DWARFISM
     Dosage: 0.2 MG, QD
     Dates: start: 20110308

REACTIONS (6)
  - MUSCLE SPASMS [None]
  - COORDINATION ABNORMAL [None]
  - DEAFNESS [None]
  - WEIGHT INCREASED [None]
  - ASTHENIA [None]
  - HYPOGLYCAEMIA [None]
